APPROVED DRUG PRODUCT: TRIHEXYPHENIDYL HYDROCHLORIDE
Active Ingredient: TRIHEXYPHENIDYL HYDROCHLORIDE
Strength: 2MG/5ML
Dosage Form/Route: ELIXIR;ORAL
Application: A040177 | Product #001 | TE Code: AA
Applicant: PHARMACEUTICAL ASSOCIATES INC
Approved: Apr 17, 1997 | RLD: No | RS: Yes | Type: RX